FAERS Safety Report 8935736 (Version 1)
Quarter: 2012Q4

REPORT INFORMATION
  Report Type: 
  Country: FR (occurrence: FR)
  Receive Date: 20121130
  Receipt Date: 20121130
  Transmission Date: 20130627
  Serious: Yes (Other)
  Sender: FDA-Public Use
  Company Number: FR-JNJFOC-20121110938

PATIENT

DRUGS (3)
  1. RISPERIDONE [Suspect]
     Indication: PSYCHOTIC DISORDER
     Route: 065
  2. METHADONE [Suspect]
     Indication: OPIATES
     Route: 065
  3. CYAMEMAZINE [Interacting]
     Indication: PSYCHOTIC DISORDER
     Route: 065

REACTIONS (2)
  - Electrocardiogram ST segment elevation [Unknown]
  - Drug interaction [Unknown]
